FAERS Safety Report 21308923 (Version 1)
Quarter: 2022Q3

REPORT INFORMATION
  Report Type: Spontaneous
  Country: US (occurrence: US)
  Receive Date: 20220908
  Receipt Date: 20220908
  Transmission Date: 20221027
  Serious: Yes (Hospitalization, Other)
  Sender: FDA-Public Use
  Company Number: US-FERRINGPH-2022FE04714

PATIENT

DRUGS (4)
  1. DESMOPRESSIN [Suspect]
     Active Substance: DESMOPRESSIN
     Indication: Diabetes insipidus
     Dosage: 20 UG, 2 TIMES DAILY
     Route: 045
  2. DESMOPRESSIN [Suspect]
     Active Substance: DESMOPRESSIN
     Dosage: 10 UG, 2 TIMES DAILY PRIOR TO ADMISSION
     Route: 045
  3. DDAVP [Suspect]
     Active Substance: DESMOPRESSIN ACETATE
     Indication: Hypernatraemia
     Dosage: 2 UG
     Route: 058
  4. DEXTROSE\WATER [Suspect]
     Active Substance: DEXTROSE\WATER
     Indication: Hypernatraemia
     Dosage: 150 ML/HR
     Route: 065

REACTIONS (6)
  - Metabolic encephalopathy [Unknown]
  - Hyponatraemia [Recovered/Resolved]
  - Rhinitis [Unknown]
  - Contraindicated product administered [Recovered/Resolved]
  - Off label use [Recovered/Resolved]
  - Product use in unapproved indication [Recovered/Resolved]
